FAERS Safety Report 11184162 (Version 2)
Quarter: 2015Q3

REPORT INFORMATION
  Report Type: Spontaneous
  Country: US (occurrence: US)
  Receive Date: 20150612
  Receipt Date: 20150818
  Transmission Date: 20151125
  Serious: Yes (Other)
  Sender: FDA-Public Use
  Company Number: US-PFIZER INC-2015194008

PATIENT
  Age: 53 Year
  Sex: Male
  Weight: 62.59 kg

DRUGS (1)
  1. SUTENT [Suspect]
     Active Substance: SUNITINIB MALATE
     Indication: RENAL NEOPLASM
     Dosage: 50 MG, DAILY (1-28 DAYS, EVERY 42 DAYS)
     Route: 048
     Dates: start: 20150521

REACTIONS (2)
  - Renal pain [Unknown]
  - Pain [Unknown]

NARRATIVE: CASE EVENT DATE: 20150804
